FAERS Safety Report 15692850 (Version 2)
Quarter: 2019Q1

REPORT INFORMATION
  Report Type: Spontaneous
  Country: AT (occurrence: AT)
  Receive Date: 20181206
  Receipt Date: 20190114
  Transmission Date: 20190417
  Serious: No
  Sender: FDA-Public Use
  Company Number: AT-AMGEN-AUTSP2018173171

PATIENT
  Age: 53 Year
  Sex: Male
  Weight: 100 kg

DRUGS (2)
  1. PEMBROLIZUMAB. [Concomitant]
     Active Substance: PEMBROLIZUMAB
     Indication: GASTROINTESTINAL MELANOMA
     Dosage: 2 MG/KG, UNK (Q28D)
     Dates: start: 20181005
  2. IMLYGIC [Suspect]
     Active Substance: TALIMOGENE LAHERPAREPVEC
     Indication: GASTROINTESTINAL MELANOMA
     Dosage: UNK
     Route: 026
     Dates: start: 20171130

REACTIONS (1)
  - Off label use [Unknown]

NARRATIVE: CASE EVENT DATE: 20171130
